FAERS Safety Report 9783753 (Version 4)
Quarter: 2016Q1

REPORT INFORMATION
  Report Type: Spontaneous
  Country: US (occurrence: US)
  Receive Date: 20131226
  Receipt Date: 20160317
  Transmission Date: 20160526
  Serious: Yes (Hospitalization, Other)
  Sender: FDA-Public Use
  Company Number: US-JNJFOC-20130801603

PATIENT
  Sex: Male

DRUGS (3)
  1. RISPERDAL [Suspect]
     Active Substance: RISPERIDONE
     Indication: ATTENTION DEFICIT/HYPERACTIVITY DISORDER
     Dosage: IN VARYING DOSE OF 0.5 TO 5 MG
     Route: 048
     Dates: start: 20080205, end: 201204
  2. RISPERIDONE. [Suspect]
     Active Substance: RISPERIDONE
     Indication: PRODUCT USED FOR UNKNOWN INDICATION
     Route: 048
  3. RISPERDAL [Suspect]
     Active Substance: RISPERIDONE
     Indication: OBSESSIVE-COMPULSIVE DISORDER
     Dosage: IN VARYING DOSE OF 0.5 TO 5 MG
     Route: 048
     Dates: start: 20080205, end: 201204

REACTIONS (6)
  - Overweight [Recovering/Resolving]
  - Emotional distress [Unknown]
  - Insulin resistance syndrome [Recovering/Resolving]
  - Hypertriglyceridaemia [Recovering/Resolving]
  - Gynaecomastia [Recovered/Resolved]
  - Off label use [Unknown]
